FAERS Safety Report 13268628 (Version 1)
Quarter: 2017Q1

REPORT INFORMATION
  Report Type: Report from Study
  Country: ZA (occurrence: ZA)
  Receive Date: 20170224
  Receipt Date: 20170224
  Transmission Date: 20170428
  Serious: Yes (Death, Hospitalization, Other)
  Sender: FDA-Public Use
  Company Number: ZA-AMGEN-ZAFSL2017028734

PATIENT
  Age: 85 Year
  Sex: Male

DRUGS (1)
  1. ARANESP [Suspect]
     Active Substance: DARBEPOETIN ALFA
     Indication: NEPHROGENIC ANAEMIA
     Dosage: 30 MUG, QWK
     Route: 058
     Dates: start: 201612, end: 201702

REACTIONS (4)
  - Hypotension [Unknown]
  - Haemoglobin abnormal [Unknown]
  - Prostate cancer metastatic [Unknown]
  - Death [Fatal]

NARRATIVE: CASE EVENT DATE: 20170219
